FAERS Safety Report 10174799 (Version 2)
Quarter: 2014Q2

REPORT INFORMATION
  Report Type: Spontaneous
  Country: US (occurrence: None)
  Receive Date: 20140416
  Receipt Date: 20140604
  Transmission Date: 20141212
  Serious: Yes (Other)
  Sender: FDA-Public Use
  Company Number: 163-POMAL-14014590

PATIENT
  Age: 54 Year
  Sex: Female
  Weight: 92.53 kg

DRUGS (17)
  1. POMALYST [Suspect]
     Indication: PLASMA CELL MYELOMA
     Dosage: 4 MG, 21 IN 28 D
     Route: 048
     Dates: start: 20130517
  2. DEXAMETHASONE (DEXAMETHASONE) [Concomitant]
  3. ACETYLCYSTEINE (ACETYLCYSTEINE) [Concomitant]
  4. BIAXIN (CLARITHROMYCIN) [Concomitant]
  5. CLARITHROMYCIN (CLARITHROMYCIN) [Concomitant]
  6. PROZAC (FLUOXETINE HYDROCHLORIDE) [Concomitant]
  7. IMMUNOGLOBULIN (IMMUNOGLOBULIN) [Concomitant]
  8. VALACYCLOVIR HCL (VALACICLOVIR HYDROCHLORIDE) [Concomitant]
  9. NEXIUM (ESOMEPRAZOLE) [Concomitant]
  10. ACIDOPHILUS [Concomitant]
  11. MULTIVITAMIN [Concomitant]
  12. ASCORBIC ACID [Concomitant]
  13. VITAMIN D3 (COLECALCIFEROL) [Concomitant]
  14. ESTER-C (CALCIUM ASCORBATE) [Concomitant]
  15. VITAMIN B [Concomitant]
  16. SELENIUM [Concomitant]
  17. ZINC [Concomitant]

REACTIONS (9)
  - Thrombocytopenia [None]
  - Respiratory tract infection [None]
  - Diarrhoea [None]
  - Fatigue [None]
  - Asthenia [None]
  - Blood count abnormal [None]
  - Pyrexia [None]
  - Chills [None]
  - Pneumonia [None]
